FAERS Safety Report 6935770-1 (Version None)
Quarter: 2010Q3

REPORT INFORMATION
  Report Type: 
  Country: None (occurrence: None)
  Receive Date: 20100817
  Receipt Date: 20100813
  Transmission Date: 20110219
  Serious: Yes (Life-Threatening, Hospitalization)
  Sender: FDA-Public Use
  Company Number: 2010SP043988

PATIENT
  Age: 69 Year
  Sex: Male
  Weight: 67 kg

DRUGS (2)
  1. INTRON A [Suspect]
     Indication: MALIGNANT MELANOMA
     Dosage: 10 MIU IV; SC
     Route: 058
     Dates: start: 20100223
  2. INTRON A [Suspect]
     Indication: MALIGNANT MELANOMA
     Dosage: 10 MIU IV; SC
     Route: 058
     Dates: start: 20100325

REACTIONS (3)
  - ACUTE MYOCARDIAL INFARCTION [None]
  - CARDIOMYOPATHY [None]
  - DERMATOMYOSITIS [None]
